FAERS Safety Report 8011513-8 (Version None)
Quarter: 2011Q4

REPORT INFORMATION
  Report Type: 
  Country: None (occurrence: None)
  Receive Date: 20111228
  Receipt Date: 20111220
  Transmission Date: 20120403
  Serious: No
  Sender: FDA-Public Use
  Company Number: US-PFIZER INC-2011309937

PATIENT

DRUGS (2)
  1. XALATAN [Suspect]
  2. LATANOPROST [Suspect]
     Dosage: UNK

REACTIONS (2)
  - PAIN [None]
  - EYE IRRITATION [None]
